FAERS Safety Report 7680564-5 (Version None)
Quarter: 2011Q3

REPORT INFORMATION
  Report Type: 
  Country: None (occurrence: None)
  Receive Date: 20110812
  Receipt Date: 20110803
  Transmission Date: 20111222
  Serious: Yes (Hospitalization)
  Sender: FDA-Public Use
  Company Number: CA-JNJFOC-20110801695

PATIENT
  Sex: Male

DRUGS (3)
  1. STELARA [Suspect]
     Indication: PSORIASIS
     Route: 058
     Dates: start: 20110406
  2. ANTIBIOTICS [Concomitant]
     Indication: INFECTION
  3. ANTIBIOTICS [Concomitant]
     Indication: NASOPHARYNGITIS

REACTIONS (2)
  - WEIGHT DECREASED [None]
  - ASTHENIA [None]
